FAERS Safety Report 15198228 (Version 1)
Quarter: 2018Q3

REPORT INFORMATION
  Report Type: Spontaneous
  Country: US (occurrence: US)
  Receive Date: 20180626
  Receipt Date: 20180626
  Transmission Date: 20181010
  Serious: No
  Sender: FDA-Public Use
  Company Number: None

PATIENT
  Age: 64 Year
  Sex: Male

DRUGS (8)
  1. AMLODIPINE BES [Concomitant]
  2. ONDANSETRON [Concomitant]
     Active Substance: ONDANSETRON
  3. PANTROPRAZOLE [Concomitant]
  4. BUDESONIDE 3MG CAPSULES, MYLAN 7155 [Suspect]
     Active Substance: BUDESONIDE
     Indication: COLITIS ULCERATIVE
     Route: 048
     Dates: start: 20180524
  5. DICYCLOMINE [Concomitant]
     Active Substance: DICYCLOMINE HYDROCHLORIDE
  6. COLESTIPOL [Concomitant]
     Active Substance: COLESTIPOL
  7. CLONIDINE. [Concomitant]
     Active Substance: CLONIDINE
  8. PROAIR HFA [Concomitant]
     Active Substance: ALBUTEROL SULFATE

REACTIONS (2)
  - Arthralgia [None]
  - Decreased appetite [None]

NARRATIVE: CASE EVENT DATE: 20180626
